FAERS Safety Report 16488757 (Version 2)
Quarter: 2019Q3

REPORT INFORMATION
  Report Type: Spontaneous
  Country: JP (occurrence: JP)
  Receive Date: 20190627
  Receipt Date: 20190709
  Transmission Date: 20191004
  Serious: Yes (Hospitalization)
  Sender: FDA-Public Use
  Company Number: PHJP2019JP007474

PATIENT
  Age: 87 Year
  Sex: Female

DRUGS (2)
  1. REVOLADE TAB [Suspect]
     Active Substance: ELTROMBOPAG
     Dosage: QOD (EVERY OTHER DAY)
     Route: 048
  2. REVOLADE TAB [Suspect]
     Active Substance: ELTROMBOPAG
     Indication: APLASTIC ANAEMIA
     Dosage: UNK
     Route: 048

REACTIONS (1)
  - Fracture pain [Unknown]
